FAERS Safety Report 21113076 (Version 2)
Quarter: 2022Q3

REPORT INFORMATION
  Report Type: Report from Study
  Country: CA (occurrence: CA)
  Receive Date: 20220721
  Receipt Date: 20220802
  Transmission Date: 20221027
  Serious: Yes (Other)
  Sender: FDA-Public Use
  Company Number: CA-NOVARTISPH-NVSC2022CA073744

PATIENT
  Age: 54 Year
  Sex: Male

DRUGS (8)
  1. ERELZI [Suspect]
     Active Substance: ETANERCEPT-SZZS
     Indication: Psoriatic arthropathy
     Dosage: 50 MG, QW
     Route: 058
     Dates: start: 20220304
  2. METHOTREXATE [Concomitant]
     Active Substance: METHOTREXATE
     Indication: Product used for unknown indication
     Dosage: UNK
     Route: 065
  3. CYCLOSPORINE [Concomitant]
     Active Substance: CYCLOSPORINE
     Indication: Product used for unknown indication
     Dosage: UNK
     Route: 065
  4. BETAMETHASONE\CALCIPOTRIENE [Concomitant]
     Active Substance: BETAMETHASONE\CALCIPOTRIENE
     Indication: Product used for unknown indication
     Dosage: UNK
     Route: 065
  5. DOVONEX [Concomitant]
     Active Substance: CALCIPOTRIENE
     Indication: Product used for unknown indication
     Dosage: UNK
     Route: 065
  6. HYDROCORTISONE [Concomitant]
     Active Substance: HYDROCORTISONE
     Indication: Product used for unknown indication
     Dosage: UNK
     Route: 065
  7. METHOTREXATE [Concomitant]
     Active Substance: METHOTREXATE
     Indication: Product used for unknown indication
     Dosage: UNK
     Route: 058
  8. TARO CLOBETASOL [Concomitant]
     Indication: Product used for unknown indication
     Dosage: UNK
     Route: 065

REACTIONS (22)
  - Blindness [Unknown]
  - Abdominal discomfort [Unknown]
  - Chills [Unknown]
  - Asthenia [Unknown]
  - Pain [Unknown]
  - Fatigue [Unknown]
  - Arthralgia [Not Recovered/Not Resolved]
  - Dyspnoea [Unknown]
  - Influenza like illness [Unknown]
  - Cough [Not Recovered/Not Resolved]
  - Visual impairment [Not Recovered/Not Resolved]
  - Diplopia [Unknown]
  - Dizziness [Unknown]
  - Vertigo [Unknown]
  - Nausea [Unknown]
  - Abdominal pain [Unknown]
  - Headache [Unknown]
  - Disturbance in attention [Unknown]
  - Pain in extremity [Unknown]
  - Back pain [Unknown]
  - Diarrhoea [Unknown]
  - Pyrexia [Unknown]

NARRATIVE: CASE EVENT DATE: 20220501
